FAERS Safety Report 18508427 (Version 1)
Quarter: 2020Q4

REPORT INFORMATION
  Report Type: Spontaneous
  Country: PK (occurrence: PK)
  Receive Date: 20201116
  Receipt Date: 20201116
  Transmission Date: 20210114
  Serious: Yes (Other)
  Sender: FDA-Public Use
  Company Number: PK-AMGEN-PAKSP2020135845

PATIENT
  Age: 59 Year
  Sex: Male

DRUGS (18)
  1. XCEPT [Concomitant]
     Dosage: 15 MILLIGRAM
     Route: 065
     Dates: start: 2017
  2. SALAZODINE [Concomitant]
     Dosage: 500 MILLIGRAM, (SALAZODINE / SALAZOPYRIN (SULFASALAZINE) 500MG 2+2 MORNING AND EVENING TO CONTI)
     Route: 065
  3. SUNVITE [Concomitant]
     Dosage: UNK, (1 IN 2 MONTHS)
     Route: 065
  4. SERT [Concomitant]
     Dosage: 50 MILLIGRAM, QD
     Route: 065
     Dates: start: 2020
  5. FOLIC ACID. [Concomitant]
     Active Substance: FOLIC ACID
     Dosage: 5 MILLIGRAM, (MON TUE WED, EVERY SATURDAY AND SUNDAY TO CONTINUE)
     Route: 065
     Dates: start: 2019
  6. CONCORD 693 [Concomitant]
     Dosage: 5 MILLIGRAM, QD
     Route: 065
     Dates: start: 2013
  7. PANADOL [Concomitant]
     Active Substance: ACETAMINOPHEN
     Indication: PAIN
     Dosage: UNK, ((USE THIS 2+2+2 -- 2 MORNING + 2 AFTERNOON + 2 EVENING)
     Route: 065
  8. STARCOX [Concomitant]
     Indication: PAIN
     Dosage: 60 MILLIGRAM, QD
     Route: 065
  9. SUNVITE [Concomitant]
     Dosage: UNK, (1 INJECTION MIX WITH WATER AND DRINK, REPEAT AFTER 4 MONTHS)
     Route: 065
  10. CALVAN [Concomitant]
     Dosage: UNK, QD
     Route: 065
  11. ENBREL [Suspect]
     Active Substance: ETANERCEPT
     Dosage: 50 MILLIGRAM, (EVERY 10 DAYS)
     Route: 058
     Dates: start: 2020
  12. RISEK [OMEPRAZOLE] [Concomitant]
     Indication: ABDOMINAL DISCOMFORT
     Dosage: 40 MILLIGRAM, (0 MG BEFORE BREAKFAST IF TAKING STRONG PAINKILLER, WITH PAIN MEDICINE OR IN CASE OF S
     Route: 065
  13. APROVEL [Concomitant]
     Active Substance: IRBESARTAN
     Indication: HYPOTENSION
     Dosage: 150 MILLIGRAM
     Route: 065
  14. NUBEROL [Concomitant]
     Dosage: UNK
  15. ENBREL [Suspect]
     Active Substance: ETANERCEPT
     Indication: SPONDYLOARTHROPATHY
     Dosage: 50 MILLIGRAM, QWK
     Route: 058
     Dates: start: 202004
  16. SALAZODINE [Concomitant]
     Dosage: UNK, (1+0+1 (500 MG) (AS REPORTED)
  17. VOLTRAL [DICLOFENAC SODIUM] [Concomitant]
     Indication: PAIN
     Dosage: 100 MILLIGRAM, QD
     Route: 065
  18. ZEE [ASCORBIC ACID] [Concomitant]
     Dosage: UNK

REACTIONS (4)
  - Off label use [Unknown]
  - Rash [Unknown]
  - Condition aggravated [Unknown]
  - COVID-19 [Recovered/Resolved]

NARRATIVE: CASE EVENT DATE: 2020
